FAERS Safety Report 20045541 (Version 1)
Quarter: 2021Q4

REPORT INFORMATION
  Report Type: Spontaneous
  Country: CN (occurrence: CN)
  Receive Date: 20211108
  Receipt Date: 20211108
  Transmission Date: 20220303
  Serious: Yes (Hospitalization)
  Sender: FDA-Public Use
  Company Number: CN-BAYER-2021A243385

PATIENT
  Age: 29 Year
  Sex: Female
  Weight: 77 kg

DRUGS (1)
  1. YAZ [Suspect]
     Active Substance: DROSPIRENONE\ETHINYL ESTRADIOL
     Indication: Polycystic ovaries
     Dosage: 1 DF, QD
     Route: 048
     Dates: start: 20201009, end: 20211022

REACTIONS (4)
  - Hepatic failure [Recovering/Resolving]
  - Abdominal distension [Recovering/Resolving]
  - Nausea [Recovering/Resolving]
  - Off label use [None]

NARRATIVE: CASE EVENT DATE: 20201009
